FAERS Safety Report 6752585-8 (Version None)
Quarter: 2010Q2

REPORT INFORMATION
  Report Type: 
  Country: None (occurrence: None)
  Receive Date: 20100602
  Receipt Date: 20100518
  Transmission Date: 20101027
  Serious: Yes (Hospitalization, Other)
  Sender: FDA-Public Use
  Company Number: PHEH2006US07282

PATIENT
  Sex: Female

DRUGS (20)
  1. AREDIA [Suspect]
     Dosage: UNK
     Dates: end: 20020326
  2. ZOMETA [Suspect]
     Dosage: UNK
     Dates: end: 20051201
  3. ASPIRIN [Concomitant]
  4. TAGAMET [Concomitant]
  5. PREMARIN [Concomitant]
  6. LEVOXYL [Concomitant]
  7. ATENOLOL [Concomitant]
  8. VERAPAMIL [Concomitant]
  9. DECADRON [Concomitant]
  10. DALMANE [Concomitant]
  11. ATIVAN [Concomitant]
  12. LIPITOR [Concomitant]
  13. CLEOCIN [Concomitant]
  14. PRILOSEC [Concomitant]
  15. AMBIEN [Concomitant]
  16. OXYCONTIN [Concomitant]
  17. NORCO [Concomitant]
  18. CALCITONIN [Concomitant]
  19. RESTASIS [Concomitant]
  20. SYSTANE (PROPYLENE GLYCOL/MACROGOL) [Concomitant]

REACTIONS (78)
  - ABSCESS [None]
  - ANAEMIA OF CHRONIC DISEASE [None]
  - ANXIETY [None]
  - ASTHENIA [None]
  - BACK PAIN [None]
  - BLOOD CREATININE INCREASED [None]
  - BLOOD PRESSURE FLUCTUATION [None]
  - BLOOD UREA INCREASED [None]
  - BONE DISORDER [None]
  - BONE PAIN [None]
  - BRONCHITIS [None]
  - BURSITIS [None]
  - CARDIAC FAILURE CONGESTIVE [None]
  - CARDIOMYOPATHY [None]
  - CATARACT [None]
  - CATARACT OPERATION [None]
  - CELLULITIS [None]
  - CHEST PAIN [None]
  - CIRCULATORY COLLAPSE [None]
  - COLON POLYPECTOMY [None]
  - COLONIC POLYP [None]
  - CONFUSIONAL STATE [None]
  - CONSTIPATION [None]
  - DECREASED INTEREST [None]
  - DEHYDRATION [None]
  - DELIRIUM [None]
  - DIVERTICULUM [None]
  - DIZZINESS [None]
  - DYSPHAGIA [None]
  - EJECTION FRACTION DECREASED [None]
  - ENDODONTIC PROCEDURE [None]
  - EYE INFECTION [None]
  - GENERAL PHYSICAL HEALTH DETERIORATION [None]
  - GLARE [None]
  - GRIEF REACTION [None]
  - HALLUCINATION [None]
  - HIATUS HERNIA [None]
  - HYPERCALCAEMIA [None]
  - HYPOKALAEMIA [None]
  - HYPOTENSION [None]
  - INFLUENZA LIKE ILLNESS [None]
  - INGROWING NAIL [None]
  - INSOMNIA [None]
  - INTRAOCULAR LENS IMPLANT [None]
  - JOINT DISLOCATION [None]
  - LEFT ATRIAL DILATATION [None]
  - LEFT VENTRICULAR HYPERTROPHY [None]
  - LETHARGY [None]
  - MACROCYTOSIS [None]
  - MENTAL STATUS CHANGES [None]
  - MITRAL VALVE INCOMPETENCE [None]
  - MUSCULOSKELETAL PAIN [None]
  - NAUSEA [None]
  - NEUROPATHY PERIPHERAL [None]
  - ORAL SURGERY [None]
  - OSTEOMYELITIS [None]
  - OSTEONECROSIS OF JAW [None]
  - PAIN [None]
  - PAIN IN EXTREMITY [None]
  - PALPITATIONS [None]
  - PYREXIA [None]
  - RENAL FAILURE ACUTE [None]
  - RENAL FAILURE CHRONIC [None]
  - RHONCHI [None]
  - ROAD TRAFFIC ACCIDENT [None]
  - SPINAL COMPRESSION FRACTURE [None]
  - SUPRAVENTRICULAR EXTRASYSTOLES [None]
  - SUPRAVENTRICULAR TACHYCARDIA [None]
  - SURGERY [None]
  - SWELLING [None]
  - SYNCOPE [None]
  - TENDONITIS [None]
  - URINARY TRACT INFECTION [None]
  - VENTRICULAR EXTRASYSTOLES [None]
  - VENTRICULAR HYPOKINESIA [None]
  - VERTEBROPLASTY [None]
  - VISUAL ACUITY REDUCED [None]
  - VOMITING [None]
